FAERS Safety Report 18489717 (Version 2)
Quarter: 2020Q4

REPORT INFORMATION
  Report Type: Report from Study
  Country: US (occurrence: US)
  Receive Date: 20201111
  Receipt Date: 20201214
  Transmission Date: 20210114
  Serious: Yes (Hospitalization)
  Sender: FDA-Public Use
  Company Number: US-GLAXOSMITHKLINE-US2020AMR209234

PATIENT
  Sex: Female
  Weight: 66.67 kg

DRUGS (1)
  1. NIRAPARIB [Suspect]
     Active Substance: NIRAPARIB
     Indication: OVARIAN CANCER
     Dosage: 200 MG, QD
     Dates: start: 20201012, end: 20201109

REACTIONS (4)
  - Therapeutic response unexpected [Unknown]
  - COVID-19 [Unknown]
  - Hospitalisation [Unknown]
  - Energy increased [Unknown]
